FAERS Safety Report 13154413 (Version 2)
Quarter: 2017Q3

REPORT INFORMATION
  Report Type: Report from Study
  Country: US (occurrence: US)
  Receive Date: 20170126
  Receipt Date: 20170726
  Transmission Date: 20171127
  Serious: No
  Sender: FDA-Public Use
  Company Number: US-AMGEN-USASL2016128388

PATIENT
  Age: 76 Year
  Sex: Female

DRUGS (1)
  1. KYPROLIS [Suspect]
     Active Substance: CARFILZOMIB
     Indication: PLASMA CELL MYELOMA
     Dosage: 34.4 MG, ON DAY ONE, TWO, EIGHT, NINE, FIFTEEN, AND SIXTEEN IN EVERY TWENTY EIGHT DAYS
     Route: 065
     Dates: start: 201602, end: 201612

REACTIONS (3)
  - Somnolence [Not Recovered/Not Resolved]
  - Fatigue [Unknown]
  - Pain in extremity [Not Recovered/Not Resolved]

NARRATIVE: CASE EVENT DATE: 2016
